FAERS Safety Report 8082091-2 (Version None)
Quarter: 2012Q1

REPORT INFORMATION
  Report Type: 
  Country: None (occurrence: None)
  Receive Date: 20120127
  Receipt Date: 20110228
  Transmission Date: 20120608
  Serious: No
  Sender: FDA-Public Use
  Company Number: US-ABBOTT-11P-163-0708082-00

PATIENT
  Age: 57 Year
  Sex: Female

DRUGS (5)
  1. MOTRIN [Concomitant]
     Indication: PAIN
  2. HUMIRA [Suspect]
     Dates: start: 20110228
  3. METFFORMIN HYDROCHLORIDE [Concomitant]
     Indication: DIABETES MELLITUS
  4. HUMIRA [Suspect]
     Indication: PSORIATIC ARTHROPATHY
     Dates: start: 20110221
  5. MICARDIS HCT [Concomitant]
     Indication: HYPERTENSION

REACTIONS (3)
  - PAIN [None]
  - FATIGUE [None]
  - PYREXIA [None]
